FAERS Safety Report 16741949 (Version 4)
Quarter: 2022Q3

REPORT INFORMATION
  Report Type: Report from Study
  Country: AR (occurrence: AR)
  Receive Date: 20190826
  Receipt Date: 20220708
  Transmission Date: 20221026
  Serious: Yes (Death, Life-Threatening, Hospitalization, Other)
  Sender: FDA-Public Use
  Company Number: AR-ABBVIE-19P-007-2785632-00

PATIENT
  Age: 47 Year
  Sex: Female
  Weight: 82 kg

DRUGS (6)
  1. UPADACITINIB [Suspect]
     Active Substance: UPADACITINIB
     Indication: Psoriatic arthropathy
     Route: 048
     Dates: start: 20181024, end: 20190502
  2. METHOTREXATE [Concomitant]
     Active Substance: METHOTREXATE
     Indication: Psoriatic arthropathy
     Route: 048
     Dates: start: 201308
  3. FOLIC ACID [Concomitant]
     Active Substance: FOLIC ACID
     Indication: Vitamin supplementation
     Route: 048
     Dates: start: 201308
  4. FENOFIBRATE [Concomitant]
     Active Substance: FENOFIBRATE
     Indication: Hypertriglyceridaemia
     Route: 048
     Dates: start: 20181108
  5. MEPREDNISONE [Concomitant]
     Active Substance: MEPREDNISONE
     Indication: Psoriatic arthropathy
     Route: 048
     Dates: start: 201308, end: 201407
  6. MEPREDNISONE [Concomitant]
     Active Substance: MEPREDNISONE
     Indication: Bronchitis
     Route: 048
     Dates: start: 20190513

REACTIONS (4)
  - Interstitial lung disease [Fatal]
  - Interstitial lung disease [Recovered/Resolved]
  - Dermatomyositis [Unknown]
  - Bronchitis [Recovered/Resolved]

NARRATIVE: CASE EVENT DATE: 20190502
